FAERS Safety Report 24920735 (Version 1)
Quarter: 2025Q1

REPORT INFORMATION
  Report Type: Report from Study
  Country: US (occurrence: US)
  Receive Date: 20250204
  Receipt Date: 20250204
  Transmission Date: 20250408
  Serious: No
  Sender: EXELIXIS
  Company Number: US-EXELIXIS-CABO-24074602

PATIENT
  Sex: Female

DRUGS (1)
  1. CABOMETYX [Suspect]
     Active Substance: CABOZANTINIB S-MALATE
     Indication: Renal cancer
     Dosage: 40 MG, QD
     Dates: start: 202402

REACTIONS (7)
  - Hepatic enzyme increased [Unknown]
  - Blister [Unknown]
  - Blood potassium decreased [Unknown]
  - Blood magnesium decreased [Unknown]
  - Stomatitis [Unknown]
  - Asthenia [Not Recovered/Not Resolved]
  - Impaired healing [Unknown]
